FAERS Safety Report 11715124 (Version 6)
Quarter: 2018Q3

REPORT INFORMATION
  Report Type: Spontaneous
  Country: US (occurrence: US)
  Receive Date: 20151109
  Receipt Date: 20180705
  Transmission Date: 20181010
  Serious: Yes (Hospitalization)
  Sender: FDA-Public Use
  Company Number: US-VERTEX PHARMACEUTICALS-2015-004085

PATIENT
  Age: 16 Year
  Sex: Female

DRUGS (19)
  1. LANSOPRAZOLE. [Concomitant]
     Active Substance: LANSOPRAZOLE
     Dosage: 1 DF, BID
     Route: 048
  2. MIRALAX [Concomitant]
     Active Substance: POLYETHYLENE GLYCOL 3350
     Dosage: 17 G, QD
     Route: 048
  3. MULTIVITAMIN [Concomitant]
     Active Substance: VITAMINS
     Dosage: 3 DF, QD
  4. PULMOZYME [Concomitant]
     Active Substance: DORNASE ALFA
     Dosage: 1 DF, QD
  5. URSODIOL. [Concomitant]
     Active Substance: URSODIOL
     Dosage: 1 DF, TID
     Route: 048
  6. AUGMENTIN [Concomitant]
     Active Substance: AMOXICILLIN\CLAVULANATE POTASSIUM
     Indication: HELICOBACTER INFECTION
  7. MEPHYTON [Concomitant]
     Active Substance: PHYTONADIONE
     Dosage: 2 DF, QD
     Route: 048
  8. FLAGYL [Concomitant]
     Active Substance: METRONIDAZOLE\METRONIDAZOLE HYDROCHLORIDE
     Indication: HELICOBACTER INFECTION
     Dosage: 500 MG, BID
  9. ALBUTEROL SULFATE. [Concomitant]
     Active Substance: ALBUTEROL SULFATE
     Indication: COUGH
     Dosage: 1 VIAL, PRN
     Route: 055
  10. NASONEX [Concomitant]
     Active Substance: MOMETASONE FUROATE
     Dosage: 1?5 SPARY
     Route: 045
  11. VITAMIN D3 [Concomitant]
     Active Substance: CHOLECALCIFEROL
  12. FLAGYL [Concomitant]
     Active Substance: METRONIDAZOLE\METRONIDAZOLE HYDROCHLORIDE
     Indication: ABDOMINAL PAIN
  13. ORKAMBI [Suspect]
     Active Substance: IVACAFTOR\LUMACAFTOR
     Indication: CYSTIC FIBROSIS
     Dosage: 2 DF, BID
     Route: 048
     Dates: start: 20150908, end: 20151007
  14. PANCREAZE [Concomitant]
     Active Substance: PANCRELIPASE AMYLASE\PANCRELIPASE LIPASE\PANCRELIPASE PROTEASE
     Dosage: 5 CAPSULES BEFORE MEALS AND 2 BEFORE SNACKS
  15. AZITHROMYCIN ANHYDROUS. [Concomitant]
     Active Substance: AZITHROMYCIN ANHYDROUS
     Dosage: 1 DF, UNK
  16. ALBUTEROL SULFATE. [Concomitant]
     Active Substance: ALBUTEROL SULFATE
     Indication: WHEEZING
     Dosage: 2 DF, PRN
     Route: 055
  17. AQUADEKS [Concomitant]
     Active Substance: MINERALS\VITAMINS
  18. HYPERSAL [Concomitant]
     Dosage: 4 ML, BID
     Route: 055
  19. TOBI [Concomitant]
     Active Substance: TOBRAMYCIN
     Dosage: 4 CAPSULE
     Route: 055

REACTIONS (12)
  - Hepatic enzyme abnormal [Recovering/Resolving]
  - Abdominal pain [Recovered/Resolved]
  - Swelling [Recovered/Resolved]
  - Decreased appetite [Recovered/Resolved]
  - Helicobacter infection [Recovered/Resolved]
  - Fatigue [Recovered/Resolved]
  - Influenza like illness [Recovered/Resolved]
  - Gallbladder disorder [Recovered/Resolved]
  - Musculoskeletal chest pain [Recovered/Resolved]
  - Weight increased [Recovered/Resolved]
  - Dysstasia [Recovered/Resolved]
  - Blood bilirubin abnormal [Recovered/Resolved]

NARRATIVE: CASE EVENT DATE: 20150919
